FAERS Safety Report 10971257 (Version 2)
Quarter: 2015Q2

REPORT INFORMATION
  Report Type: Spontaneous
  Country: FR (occurrence: FR)
  Receive Date: 20150331
  Receipt Date: 20150420
  Transmission Date: 20150821
  Serious: Yes (Death)
  Sender: FDA-Public Use
  Company Number: FR-ROCHE-1558285

PATIENT
  Age: 88 Year
  Sex: Male

DRUGS (19)
  1. LUCENTIS [Suspect]
     Active Substance: RANIBIZUMAB
     Indication: AGE-RELATED MACULAR DEGENERATION
     Dosage: FIRST INJECTION IN LEFT EYE
     Route: 050
     Dates: start: 2008
  2. LUCENTIS [Suspect]
     Active Substance: RANIBIZUMAB
     Dosage: FOURTH INJECTION IN RIGHT EYE
     Route: 050
     Dates: start: 20111213
  3. LUCENTIS [Suspect]
     Active Substance: RANIBIZUMAB
     Dosage: ONE INJECTION IN BOTH EYE
     Route: 050
     Dates: start: 201403
  4. LUCENTIS [Suspect]
     Active Substance: RANIBIZUMAB
     Dosage: ELEVENTH INJECTION IN LEFT EYE
     Route: 050
     Dates: start: 20140418, end: 20140418
  5. LUCENTIS [Suspect]
     Active Substance: RANIBIZUMAB
     Dosage: SEVENTH INJECTION IN LEFT EYE.
     Route: 050
     Dates: start: 201003
  6. LUCENTIS [Suspect]
     Active Substance: RANIBIZUMAB
     Dosage: NINETH INJECTION IN LEFT EYE
     Route: 050
     Dates: start: 201008
  7. LUCENTIS [Suspect]
     Active Substance: RANIBIZUMAB
     Dosage: TENTH INJECTION IN LEFT EYE.
     Route: 050
     Dates: start: 20120620
  8. LUCENTIS [Suspect]
     Active Substance: RANIBIZUMAB
     Dosage: FIFTH INJECTION IN RIGHT EYE
     Route: 050
     Dates: start: 20121002
  9. LUCENTIS [Suspect]
     Active Substance: RANIBIZUMAB
     Dosage: FOURTH INJECTION IN LEFT EYE
     Route: 050
     Dates: start: 2008
  10. LUCENTIS [Suspect]
     Active Substance: RANIBIZUMAB
     Dosage: SECOND INJECTION IN LEFT EYE
     Route: 050
     Dates: start: 2008
  11. LUCENTIS [Suspect]
     Active Substance: RANIBIZUMAB
     Dosage: FIFTH INJECTION IN LEFT EYE
     Route: 050
     Dates: start: 2008
  12. LUCENTIS [Suspect]
     Active Substance: RANIBIZUMAB
     Dosage: SECOND INJECTION IN RIGHT EYE.
     Route: 050
     Dates: start: 20110823
  13. LUCENTIS [Suspect]
     Active Substance: RANIBIZUMAB
     Dosage: SEVENTH INJECTION IN RIGHT EYE
     Route: 050
     Dates: start: 20140307
  14. LUCENTIS [Suspect]
     Active Substance: RANIBIZUMAB
     Dosage: THIRD INJECTION IN LEFT EYE
     Route: 050
     Dates: start: 2008
  15. LUCENTIS [Suspect]
     Active Substance: RANIBIZUMAB
     Dosage: FIRST INJECTION IN RIGHT EYE
     Route: 050
     Dates: start: 20090907
  16. LUCENTIS [Suspect]
     Active Substance: RANIBIZUMAB
     Route: 050
     Dates: start: 20110920
  17. LUCENTIS [Suspect]
     Active Substance: RANIBIZUMAB
     Dosage: SIXTH INJECTION IN RIGHT EYE
     Route: 050
     Dates: start: 20130402
  18. LUCENTIS [Suspect]
     Active Substance: RANIBIZUMAB
     Dosage: SIXTH INJECTION LEFT EYE
     Route: 050
     Dates: start: 200909
  19. LUCENTIS [Suspect]
     Active Substance: RANIBIZUMAB
     Dosage: EIGHT INJECTION IN LEFT EYE
     Route: 050
     Dates: start: 201005

REACTIONS (1)
  - Death [Fatal]

NARRATIVE: CASE EVENT DATE: 20140426
